FAERS Safety Report 16786352 (Version 3)
Quarter: 2020Q3

REPORT INFORMATION
  Report Type: Report from Study
  Country: BR (occurrence: BR)
  Receive Date: 20190909
  Receipt Date: 20200827
  Transmission Date: 20201102
  Serious: Yes (Death, Hospitalization, Other)
  Sender: FDA-Public Use
  Company Number: PHHY2019BR208307

PATIENT
  Age: 73 Year
  Sex: Female

DRUGS (3)
  1. SANDOSTATIN LAR DEPOT [Suspect]
     Active Substance: OCTREOTIDE ACETATE
     Indication: PRODUCT USED FOR UNKNOWN INDICATION
     Dosage: 30 MG
     Route: 065
  2. SANDOSTATIN LAR DEPOT [Suspect]
     Active Substance: OCTREOTIDE ACETATE
     Dosage: 40 MG
     Route: 065
  3. SANDOSTATIN LAR DEPOT [Suspect]
     Active Substance: OCTREOTIDE ACETATE

REACTIONS (8)
  - Fall [Fatal]
  - Necrosis [Unknown]
  - Nosocomial infection [Unknown]
  - Klebsiella infection [Unknown]
  - Implantation complication [Unknown]
  - Femur fracture [Fatal]
  - Sepsis [Fatal]
  - Decubitus ulcer [Unknown]

NARRATIVE: CASE EVENT DATE: 201902
